FAERS Safety Report 4875709-6 (Version None)
Quarter: 2006Q1

REPORT INFORMATION
  Report Type: 
  Country: None (occurrence: None)
  Receive Date: 20060105
  Receipt Date: 20051227
  Transmission Date: 20060701
  Serious: Yes (Life-Threatening, Hospitalization)
  Sender: FDA-Public Use
  Company Number: GXKR2005JP02074

PATIENT
  Age: 82 Year
  Sex: Male

DRUGS (1)
  1. RIFAMPICIN [Suspect]
     Dates: start: 20041001

REACTIONS (9)
  - ASCITES [None]
  - CLOSTRIDIUM COLITIS [None]
  - COLITIS ULCERATIVE [None]
  - GASTROENTERITIS STAPHYLOCOCCAL [None]
  - HYPOTENSION [None]
  - ILEUS PARALYTIC [None]
  - LOSS OF CONSCIOUSNESS [None]
  - SEPTIC SHOCK [None]
  - TACHYCARDIA [None]
